FAERS Safety Report 5611115-4 (Version None)
Quarter: 2008Q1

REPORT INFORMATION
  Report Type: 
  Country: None (occurrence: None)
  Receive Date: 20080201
  Receipt Date: 20080122
  Transmission Date: 20080703
  Serious: Yes (Hospitalization)
  Sender: FDA-Public Use
  Company Number: JP-MERCK-0801USA05149

PATIENT
  Age: 50 Year
  Sex: Male

DRUGS (3)
  1. PEPCID RPD [Suspect]
     Route: 048
  2. GASMOTIN [Concomitant]
     Route: 048
  3. TARGOCID [Suspect]
     Indication: INFECTION
     Route: 065
     Dates: start: 20080108, end: 20080122

REACTIONS (1)
  - HENOCH-SCHONLEIN PURPURA [None]
